FAERS Safety Report 5839295-6 (Version None)
Quarter: 2008Q3

REPORT INFORMATION
  Report Type: 
  Country: None (occurrence: None)
  Receive Date: 20080808
  Receipt Date: 20080729
  Transmission Date: 20090109
  Serious: Yes (Death)
  Sender: FDA-Public Use
  Company Number: PR-PFIZER INC-2008063902

PATIENT
  Sex: Female

DRUGS (1)
  1. ZYVOX [Suspect]
     Indication: PNEUMONIA

REACTIONS (1)
  - ARRHYTHMIA [None]
